FAERS Safety Report 15545107 (Version 2)
Quarter: 2018Q4

REPORT INFORMATION
  Report Type: Report from Study
  Country: None (occurrence: US)
  Receive Date: 20181024
  Receipt Date: 20181127
  Transmission Date: 20190205
  Serious: Yes (Other)
  Sender: FDA-Public Use
  Company Number: US-ABBVIE-18K-163-2523351-00

PATIENT
  Age: 68 Year
  Sex: Male
  Weight: 74.91 kg

DRUGS (44)
  1. PREDNISONE. [Suspect]
     Active Substance: PREDNISONE
     Indication: BACTERIAL INFECTION
     Route: 065
     Dates: start: 201808, end: 2018
  2. PREDNISONE. [Suspect]
     Active Substance: PREDNISONE
     Indication: RASH
     Route: 065
     Dates: start: 201810
  3. METFORMIN [Concomitant]
     Active Substance: METFORMIN HYDROCHLORIDE
     Indication: TYPE 2 DIABETES MELLITUS
  4. TYLENOL [Concomitant]
     Active Substance: ACETAMINOPHEN
     Indication: PAIN
  5. CLARITIN [Concomitant]
     Active Substance: LORATADINE
     Indication: HYPERSENSITIVITY
  6. SYMBICORT [Concomitant]
     Active Substance: BUDESONIDE\FORMOTEROL FUMARATE DIHYDRATE
     Indication: CHRONIC OBSTRUCTIVE PULMONARY DISEASE
  7. GLUCOSAMINE [Concomitant]
     Active Substance: GLUCOSAMINE
     Indication: ARTHRALGIA
  8. DRAMAMINE [Concomitant]
     Active Substance: DIMENHYDRINATE
     Indication: ANTIALLERGIC THERAPY
  9. GUAIFENESIN. [Concomitant]
     Active Substance: GUAIFENESIN
     Indication: ANTITUSSIVE THERAPY
  10. DICLOFENAC [Concomitant]
     Active Substance: DICLOFENAC
     Indication: PAIN
  11. CELEBREX [Concomitant]
     Active Substance: CELECOXIB
     Indication: OSTEOARTHRITIS
  12. CAFFEINE. [Concomitant]
     Active Substance: CAFFEINE
     Indication: PAIN
  13. VITAMIN D3 [Concomitant]
     Active Substance: CHOLECALCIFEROL
     Indication: VITAMIN SUPPLEMENTATION
  14. IPRATROPIUM [Concomitant]
     Active Substance: IPRATROPIUM
     Indication: CHRONIC OBSTRUCTIVE PULMONARY DISEASE
  15. HUMIRA [Suspect]
     Active Substance: ADALIMUMAB
     Indication: RHEUMATOID ARTHRITIS
     Route: 058
     Dates: start: 20171021, end: 20181005
  16. ARAVA [Concomitant]
     Active Substance: LEFLUNOMIDE
     Indication: RHEUMATOID ARTHRITIS
  17. VICKS DAYQUIL [Concomitant]
     Active Substance: DEXTROMETHORPHAN HYDROBROMIDE\GUAIFENESIN
     Indication: COUGH
  18. SUDAFED [Concomitant]
     Active Substance: PSEUDOEPHEDRINE HYDROCHLORIDE
     Indication: OBSTRUCTION
  19. DRAMAMINE [Concomitant]
     Active Substance: DIMENHYDRINATE
     Indication: SLEEP DISORDER THERAPY
  20. INSULIN [Concomitant]
     Active Substance: INSULIN NOS
     Indication: TYPE 2 DIABETES MELLITUS
  21. VERAPAMIL [Concomitant]
     Active Substance: VERAPAMIL HYDROCHLORIDE
     Indication: HYPERTENSION
  22. NOVOLOG [Concomitant]
     Active Substance: INSULIN ASPART
     Indication: TYPE 2 DIABETES MELLITUS
  23. TRAMADOL. [Concomitant]
     Active Substance: TRAMADOL
     Indication: ARTHRALGIA
  24. GLUCOSAMINE [Concomitant]
     Active Substance: GLUCOSAMINE
     Indication: MUSCULOSKELETAL STIFFNESS
  25. FIBER [Concomitant]
     Active Substance: PSYLLIUM HUSK
     Indication: DYSPEPSIA
  26. VOLTAREN [Concomitant]
     Active Substance: DICLOFENAC SODIUM
     Indication: ARTHRALGIA
  27. MUCINEX [Concomitant]
     Active Substance: GUAIFENESIN
     Indication: INCREASED VISCOSITY OF BRONCHIAL SECRETION
  28. VICKS DAYQUIL [Concomitant]
     Active Substance: DEXTROMETHORPHAN HYDROBROMIDE\GUAIFENESIN
     Indication: RESPIRATORY TRACT CONGESTION
  29. GLUCOSAMINE [Concomitant]
     Active Substance: GLUCOSAMINE
     Indication: ARTHROPATHY
  30. GLUCOSAMINE [Concomitant]
     Active Substance: GLUCOSAMINE
     Indication: OSTEOARTHRITIS
  31. ALBUTEROL. [Concomitant]
     Active Substance: ALBUTEROL
     Indication: CHRONIC OBSTRUCTIVE PULMONARY DISEASE
  32. COMBIVENT RESPIMAT [Concomitant]
     Active Substance: ALBUTEROL SULFATE\IPRATROPIUM BROMIDE
     Indication: CHRONIC OBSTRUCTIVE PULMONARY DISEASE
  33. TACROLIMUS. [Concomitant]
     Active Substance: TACROLIMUS
     Indication: PSORIASIS
  34. LEVAQUIN [Suspect]
     Active Substance: LEVOFLOXACIN
     Indication: BACTERIAL INFECTION
     Route: 065
     Dates: start: 201808, end: 2018
  35. LEVAQUIN [Suspect]
     Active Substance: LEVOFLOXACIN
     Indication: RASH
     Route: 065
     Dates: start: 201810
  36. ALBUTEROL W/IPRATROPIUM [Concomitant]
     Active Substance: ALBUTEROL\IPRATROPIUM
     Indication: OBSTRUCTION
  37. VERAPAMIL [Concomitant]
     Active Substance: VERAPAMIL HYDROCHLORIDE
     Indication: HYPERTENSION
  38. CRESTOR [Concomitant]
     Active Substance: ROSUVASTATIN CALCIUM
     Indication: BLOOD CHOLESTEROL INCREASED
  39. GLUCOSAMINE [Concomitant]
     Active Substance: GLUCOSAMINE
     Indication: SWELLING
  40. CAFFEINE. [Concomitant]
     Active Substance: CAFFEINE
     Indication: DYSPNOEA
  41. CAFFEINE. [Concomitant]
     Active Substance: CAFFEINE
     Indication: HEADACHE
  42. OMEPRAZOLE. [Concomitant]
     Active Substance: OMEPRAZOLE
     Indication: GASTROOESOPHAGEAL REFLUX DISEASE
  43. VICKS DAYQUIL [Concomitant]
     Active Substance: DEXTROMETHORPHAN HYDROBROMIDE\GUAIFENESIN
     Indication: LUNG DISORDER
  44. ASTELIN [Concomitant]
     Active Substance: AZELASTINE HYDROCHLORIDE
     Indication: HYPERSENSITIVITY

REACTIONS (9)
  - Cystic lung disease [Unknown]
  - Bronchiectasis [Unknown]
  - Bacterial infection [Unknown]
  - Drug hypersensitivity [Unknown]
  - Bronchitis [Unknown]
  - Asthma [Not Recovered/Not Resolved]
  - Psoriasis [Not Recovered/Not Resolved]
  - Rash [Not Recovered/Not Resolved]
  - Pulmonary mass [Not Recovered/Not Resolved]

NARRATIVE: CASE EVENT DATE: 2017
